FAERS Safety Report 10728864 (Version 1)
Quarter: 2015Q1

REPORT INFORMATION
  Report Type: Spontaneous
  Country: US (occurrence: None)
  Receive Date: 20150120
  Receipt Date: 20150120
  Transmission Date: 20150721
  Serious: Yes (Other)
  Sender: FDA-Public Use
  Company Number: None

PATIENT
  Age: 59 Year
  Sex: Male
  Weight: 90.72 kg

DRUGS (1)
  1. XARTEMIS XR [Suspect]
     Active Substance: ACETAMINOPHEN\OXYCODONE HYDROCHLORIDE
     Indication: PROCEDURAL PAIN
     Dosage: 2 PILLS TWICE DAILY TAKEN BY MOUTH
     Route: 048
     Dates: start: 20150114, end: 20150117

REACTIONS (8)
  - Erythema [None]
  - Pulse abnormal [None]
  - Hyperhidrosis [None]
  - Dyspnoea [None]
  - Nausea [None]
  - Abdominal pain upper [None]
  - Asthenia [None]
  - Oxygen saturation decreased [None]

NARRATIVE: CASE EVENT DATE: 20150117
